FAERS Safety Report 8446179-6 (Version None)
Quarter: 2012Q2

REPORT INFORMATION
  Report Type: 
  Country: None (occurrence: None)
  Receive Date: 20120323
  Receipt Date: 20111215
  Transmission Date: 20120825
  Serious: Yes (Other)
  Sender: FDA-Public Use
  Company Number: 163-21880-11091265

PATIENT
  Age: 59 Year
  Sex: Male

DRUGS (6)
  1. ASPIRIN [Concomitant]
  2. MULTIVITAMIN [Concomitant]
  3. CRESTOR [Concomitant]
  4. VELCADE [Concomitant]
  5. AREDIA [Concomitant]
  6. REVLIMID [Suspect]
     Indication: MULTIPLE MYELOMA
     Dosage: 15 MG, 1 IN 1 D PO
     Route: 048
     Dates: start: 20110501, end: 20110101

REACTIONS (3)
  - FALL [None]
  - DIZZINESS [None]
  - SYNCOPE [None]
